FAERS Safety Report 15932173 (Version 1)
Quarter: 2019Q1

REPORT INFORMATION
  Report Type: Spontaneous
  Country: US (occurrence: US)
  Receive Date: 20190207
  Receipt Date: 20190207
  Transmission Date: 20190417
  Serious: No
  Sender: FDA-Public Use
  Company Number: US-PFIZER INC-2018455512

PATIENT
  Age: 16 Year
  Sex: Male
  Weight: 63.49 kg

DRUGS (1)
  1. GENOTROPIN [Suspect]
     Active Substance: SOMATROPIN
     Dosage: 3.2 MG, DAILY

REACTIONS (1)
  - Red blood cell count increased [Unknown]

NARRATIVE: CASE EVENT DATE: 20180625
